FAERS Safety Report 6328876-1 (Version None)
Quarter: 2009Q3

REPORT INFORMATION
  Report Type: 
  Country: None (occurrence: None)
  Receive Date: 20090826
  Receipt Date: 20090820
  Transmission Date: 20100115
  Serious: Yes (Hospitalization, Disabling)
  Sender: FDA-Public Use
  Company Number: FR-AVENTIS-200911669GDDC

PATIENT
  Age: 34 Year
  Sex: Female

DRUGS (11)
  1. RIFATER [Suspect]
     Indication: TUBERCULOSIS
     Dosage: DOSE: 4 DF
     Dates: start: 20081114
  2. TRUVADA [Suspect]
     Indication: HIV INFECTION
     Dosage: DOSE: 1 DF
     Dates: start: 20081114
  3. SUSTIVA [Suspect]
     Indication: HIV INFECTION
     Dosage: DOSE: 1 DF
     Dates: start: 20081114
  4. FUZEON [Suspect]
     Indication: HIV INFECTION
     Dates: start: 20081114
  5. MYAMBUTOL [Suspect]
     Indication: TUBERCULOSIS
     Dosage: DOSE: 2 DF
     Dates: start: 20081114
  6. SPECIAFOLDINE [Concomitant]
     Dosage: DOSE: 1 DF
  7. BACTRIM [Concomitant]
     Indication: PROPHYLAXIS
     Dosage: DOSE: 1 DF
     Dates: start: 20081114
  8. PIRILENE [Concomitant]
     Route: 048
     Dates: start: 20090203, end: 20090325
  9. MYAMBUTOL [Concomitant]
     Route: 048
     Dates: start: 20090203, end: 20090225
  10. RIMIFON [Concomitant]
     Route: 042
     Dates: start: 20090203, end: 20090225
  11. RIFAMPICIN [Concomitant]
     Route: 042
     Dates: start: 20090203, end: 20090325

REACTIONS (19)
  - ANAEMIA [None]
  - BODY TEMPERATURE DECREASED [None]
  - CONDITION AGGRAVATED [None]
  - DRUG LEVEL INCREASED [None]
  - DYSAESTHESIA [None]
  - FOOD INTOLERANCE [None]
  - GENERAL PHYSICAL HEALTH DETERIORATION [None]
  - HEPATIC NECROSIS [None]
  - HILAR LYMPHADENOPATHY [None]
  - IMMUNE RECONSTITUTION SYNDROME [None]
  - IMPAIRED GASTRIC EMPTYING [None]
  - LUNG NEOPLASM [None]
  - LYMPHADENOPATHY [None]
  - MALNUTRITION [None]
  - NEUROPATHY PERIPHERAL [None]
  - NODULE [None]
  - PLATELET COUNT DECREASED [None]
  - SPLEEN DISORDER [None]
  - TUBERCULOSIS [None]
